FAERS Safety Report 16999287 (Version 1)
Quarter: 2019Q4

REPORT INFORMATION
  Report Type: Spontaneous
  Country: US (occurrence: US)
  Receive Date: 20191106
  Receipt Date: 20191106
  Transmission Date: 20200122
  Serious: Yes (Other)
  Sender: FDA-Public Use
  Company Number: US-PFIZER INC-2018211077

PATIENT
  Age: 67 Year
  Sex: Female

DRUGS (3)
  1. LYRICA [Suspect]
     Active Substance: PREGABALIN
     Indication: POLYMYOSITIS
     Dosage: 50 MG, 3X/DAY
     Route: 048
  2. LYRICA [Suspect]
     Active Substance: PREGABALIN
     Indication: DERMATOMYOSITIS
  3. LYRICA [Suspect]
     Active Substance: PREGABALIN
     Indication: MYOSITIS

REACTIONS (5)
  - Upper limb fracture [Unknown]
  - Off label use [Unknown]
  - Fall [Unknown]
  - Product use in unapproved indication [Unknown]
  - Confusional state [Unknown]
